FAERS Safety Report 7070895-4 (Version None)
Quarter: 2010Q4

REPORT INFORMATION
  Report Type: 
  Country: None (occurrence: None)
  Receive Date: 20101029
  Receipt Date: 20101011
  Transmission Date: 20110411
  Serious: Yes (Congenital Anomaly)
  Sender: FDA-Public Use
  Company Number: US-PFIZER INC-2007071355

PATIENT
  Sex: Male
  Weight: 3.4 kg

DRUGS (4)
  1. NELFINAVIR MESILATE [Suspect]
     Indication: HIV INFECTION
     Route: 065
  2. NELFINAVIR MESILATE [Suspect]
     Indication: PRODUCT USED FOR UNKNOWN INDICATION
  3. 3TC [Suspect]
     Indication: PRODUCT USED FOR UNKNOWN INDICATION
     Route: 065
  4. AZT [Suspect]
     Indication: PRODUCT USED FOR UNKNOWN INDICATION
     Route: 065

REACTIONS (4)
  - HEPATOMEGALY [None]
  - HYDROCELE [None]
  - HYDROCEPHALUS [None]
  - PYLORIC STENOSIS [None]
